FAERS Safety Report 16090475 (Version 1)
Quarter: 2019Q1

REPORT INFORMATION
  Report Type: Spontaneous
  Country: US (occurrence: US)
  Receive Date: 20190319
  Receipt Date: 20190319
  Transmission Date: 20190418
  Serious: No
  Sender: FDA-Public Use
  Company Number: US-TARO-2019TAR00179

PATIENT
  Age: 78 Year
  Sex: Female
  Weight: 63.49 kg

DRUGS (12)
  1. MULTIVITAMINS [Concomitant]
     Active Substance: VITAMINS
  2. ZYRTEC [Concomitant]
     Active Substance: CETIRIZINE HYDROCHLORIDE
  3. POTASSIUM [Concomitant]
     Active Substance: POTASSIUM
  4. METRONIDAZOLE GEL USP 0.75% [Suspect]
     Active Substance: METRONIDAZOLE
     Indication: ROSACEA
     Dosage: APPLY A SMALL AMOUNT, 2X/DAY
     Route: 061
     Dates: start: 20190110, end: 201902
  5. LOSARTAN/HCTZ [Concomitant]
     Active Substance: HYDROCHLOROTHIAZIDE\LOSARTAN
     Dosage: UNK UNK, 1X/DAY
  6. PROBIOTICS [Concomitant]
     Active Substance: PROBIOTICS NOS
  7. LEVOTHYROXINE. [Concomitant]
     Active Substance: LEVOTHYROXINE
     Dosage: 88 ?G, 1X/DAY
  8. FOLIC ACID. [Concomitant]
     Active Substance: FOLIC ACID
  9. METRONIDAZOLE GEL USP, 1% [Suspect]
     Active Substance: METRONIDAZOLE
     Indication: ROSACEA
     Dosage: APPLY A SMALL AMOUNT, 2X/DAY
     Route: 061
     Dates: start: 201902, end: 2019
  10. AMLODIPINE [Concomitant]
     Active Substance: AMLODIPINE BESYLATE
     Dosage: 2.5 MG, 2X/DAY
  11. SALMON OIL [Concomitant]
     Active Substance: FISH OIL
  12. CALCIUM [Concomitant]
     Active Substance: CALCIUM

REACTIONS (4)
  - Drug ineffective [Recovered/Resolved]
  - Application site pain [Recovered/Resolved]
  - Inappropriate schedule of product administration [Recovered/Resolved]
  - Product quality issue [Not Recovered/Not Resolved]

NARRATIVE: CASE EVENT DATE: 20190110
